FAERS Safety Report 19176826 (Version 1)
Quarter: 2021Q2

REPORT INFORMATION
  Report Type: Spontaneous
  Country: US (occurrence: US)
  Receive Date: 20210424
  Receipt Date: 20210424
  Transmission Date: 20210717
  Serious: No
  Sender: FDA-Public Use
  Company Number: US-ORGANON-O2104USA000184

PATIENT
  Age: 54 Year
  Sex: Female

DRUGS (1)
  1. DIPROLENE AF [Suspect]
     Active Substance: BETAMETHASONE DIPROPIONATE
     Indication: NAIL DISORDER
     Dosage: APPLY TO NAILS 2 TIMES DAILY

REACTIONS (1)
  - Product use in unapproved indication [Unknown]
